FAERS Safety Report 9598214 (Version 1)
Quarter: 2013Q4

REPORT INFORMATION
  Report Type: Spontaneous
  Country: US (occurrence: US)
  Receive Date: 20131004
  Receipt Date: 20131004
  Transmission Date: 20140711
  Serious: No
  Sender: FDA-Public Use
  Company Number: US-AMGEN-USASP2013022552

PATIENT
  Age: 70 Year
  Sex: Male
  Weight: 108.57 kg

DRUGS (12)
  1. ENBREL [Suspect]
     Indication: RHEUMATOID ARTHRITIS
     Dosage: 50 MG, QWK
     Route: 058
     Dates: start: 20050629
  2. ALLOPURINOL [Concomitant]
     Indication: GOUT
     Dosage: 100 UNK, QD
     Route: 048
     Dates: start: 20050629
  3. ARAVA [Concomitant]
     Dosage: 10 UNK, QD
     Route: 048
     Dates: start: 20050629
  4. ASPIRIN [Concomitant]
     Dosage: 81 UNK, QD
     Route: 048
     Dates: start: 20050629
  5. ISOSORB                            /07346401/ [Concomitant]
     Dosage: UNK
     Route: 048
  6. LIPITOR [Concomitant]
     Dosage: 20 UNK, UNK
     Route: 048
  7. PEPCID                             /00706001/ [Concomitant]
     Dosage: UNK UNK, BID
  8. PLAQUENIL                          /00072602/ [Concomitant]
     Dosage: 200 MG, 2/DAY
  9. PLAVIX [Concomitant]
     Dosage: UNK 1+/DAY
  10. SIMVASTATIN [Concomitant]
     Dosage: UNK UNK, QD
  11. TENORMIN [Concomitant]
     Dosage: 50 UNK, QD (50 1T/DAT)
  12. ZOLOFT [Concomitant]
     Dosage: 100 UNK, QD (2T/DAY)

REACTIONS (4)
  - Gait disturbance [Not Recovered/Not Resolved]
  - Arthralgia [Not Recovered/Not Resolved]
  - Back pain [Not Recovered/Not Resolved]
  - Mobility decreased [Not Recovered/Not Resolved]
